FAERS Safety Report 8422293-6 (Version None)
Quarter: 2012Q2

REPORT INFORMATION
  Report Type: 
  Country: None (occurrence: None)
  Receive Date: 20120601
  Receipt Date: 20120524
  Transmission Date: 20120825
  Serious: Yes (Other)
  Sender: FDA-Public Use
  Company Number: 2012SP021971

PATIENT
  Age: 84 Year
  Sex: Female

DRUGS (8)
  1. MEXILETINE HYDROCHLORIDE [Concomitant]
  2. RANITIDINE HCL [Concomitant]
  3. URSODIOL [Concomitant]
  4. MIRTAZAPINE [Suspect]
     Indication: DEPRESSION
     Dosage: 15 MG;QD;PO
     Route: 048
     Dates: start: 20120413
  5. DONEPEZIL HCL [Concomitant]
  6. TRIAZOLAM [Concomitant]
  7. SEROQUEL [Suspect]
     Indication: DEMENTIA
     Dosage: 50 MG;QD;PO
     Route: 048
     Dates: end: 20120421
  8. SEROQUEL [Suspect]
     Indication: DELIRIUM
     Dosage: 50 MG;QD;PO
     Route: 048
     Dates: end: 20120421

REACTIONS (6)
  - TREMOR [None]
  - HYPOAESTHESIA [None]
  - SOMNOLENCE [None]
  - MUSCULAR WEAKNESS [None]
  - ASTHENIA [None]
  - DRUG INTERACTION [None]
